FAERS Safety Report 21050188 (Version 1)
Quarter: 2022Q3

REPORT INFORMATION
  Report Type: Spontaneous
  Country: ES (occurrence: ES)
  Receive Date: 20220706
  Receipt Date: 20220706
  Transmission Date: 20221026
  Serious: Yes (Other)
  Sender: FDA-Public Use
  Company Number: None

PATIENT
  Age: 9 Year
  Sex: Male
  Weight: 21 kg

DRUGS (8)
  1. HUMIRA [Interacting]
     Active Substance: ADALIMUMAB
     Indication: Uveitis
     Route: 058
     Dates: start: 20160729
  2. METHOTREXATE [Interacting]
     Active Substance: METHOTREXATE
     Indication: Juvenile idiopathic arthritis
     Dosage: 2 PASTILLAS UN DIA A LA SEMANA
     Route: 048
     Dates: start: 20160301, end: 20220604
  3. COMIRNATY [Concomitant]
     Active Substance: TOZINAMERAN
     Indication: COVID-19 immunisation
     Dosage: 1 INYECCION
     Dates: start: 20220506, end: 20220506
  4. FOLIC ACID [Concomitant]
     Active Substance: FOLIC ACID
     Indication: Product used for unknown indication
     Dosage: 1 TABLET WEEKLY
     Dates: start: 20160301
  5. SINGULAIR [Concomitant]
     Active Substance: MONTELUKAST SODIUM
     Indication: Asthma
     Dosage: 1 PASTILLA AL DIA
  6. TACROLIMUS [Concomitant]
     Active Substance: TACROLIMUS
     Indication: Blepharitis
     Dosage: CADA 12H EN LOS 2 OJOS
     Dates: start: 20220530
  7. SERETIDE [Concomitant]
     Active Substance: FLUTICASONE PROPIONATE\SALMETEROL XINAFOATE
     Indication: Asthma
     Dosage: 3 O 4 INHALACIONES AL DIA
  8. EBASTINE [Concomitant]
     Active Substance: EBASTINE
     Indication: Hypersensitivity

REACTIONS (1)
  - Haematemesis [Recovered/Resolved]

NARRATIVE: CASE EVENT DATE: 20220624
